FAERS Safety Report 6300059-0 (Version None)
Quarter: 2009Q3

REPORT INFORMATION
  Report Type: 
  Country: None (occurrence: None)
  Receive Date: 20090806
  Receipt Date: 20090728
  Transmission Date: 20100115
  Serious: Yes (Hospitalization)
  Sender: FDA-Public Use
  Company Number: US-ELI_LILLY_AND_COMPANY-US200903007841

PATIENT
  Sex: Female
  Weight: 123.81 kg

DRUGS (3)
  1. CYMBALTA [Suspect]
     Indication: FIBROMYALGIA
     Dosage: 30 MG, DAILY (1/D)
     Dates: start: 20090201, end: 20090201
  2. CYMBALTA [Suspect]
     Dosage: 60 MG, DAILY (1/D)
     Dates: start: 20090226, end: 20090404
  3. CYMBALTA [Suspect]
     Dosage: 60 MG, UNK
     Dates: start: 20090412

REACTIONS (1)
  - HERNIA [None]
